FAERS Safety Report 14646533 (Version 1)
Quarter: 2018Q1

REPORT INFORMATION
  Report Type: Spontaneous
  Country: US (occurrence: US)
  Receive Date: 20180316
  Receipt Date: 20180316
  Transmission Date: 20180509
  Serious: Yes (Death, Other)
  Sender: FDA-Public Use
  Company Number: US-B.I. PHARMACEUTICALS,INC./RIDGEFIELD-2018-BI-014507

PATIENT
  Sex: Male

DRUGS (1)
  1. OFEV [Suspect]
     Active Substance: NINTEDANIB
     Indication: PULMONARY FIBROSIS
     Dosage: 1 CAPSULE EVERY 12 HOURS;  FORM STRENGTH: 150 MG; FORMULATION: CAPSULE
     Route: 048
     Dates: start: 2017

REACTIONS (2)
  - Cardiac disorder [Unknown]
  - Pulmonary fibrosis [Fatal]

NARRATIVE: CASE EVENT DATE: 2017
